FAERS Safety Report 22064973 (Version 1)
Quarter: 2023Q1

REPORT INFORMATION
  Report Type: Spontaneous
  Country: DE (occurrence: DE)
  Receive Date: 20230306
  Receipt Date: 20230306
  Transmission Date: 20230418
  Serious: Yes (Life-Threatening, Hospitalization, Other)
  Sender: FDA-Public Use
  Company Number: DE-DCGMA-23200404

PATIENT
  Age: 81 Year
  Sex: Male
  Weight: 100 kg

DRUGS (1)
  1. EMPAGLIFLOZIN [Suspect]
     Active Substance: EMPAGLIFLOZIN
     Indication: Type 2 diabetes mellitus

REACTIONS (5)
  - Sepsis [Not Recovered/Not Resolved]
  - Bladder tamponade [Not Recovered/Not Resolved]
  - Bacterial prostatitis [Not Recovered/Not Resolved]
  - Urine output decreased [Not Recovered/Not Resolved]
  - Prostatic abscess [Not Recovered/Not Resolved]

NARRATIVE: CASE EVENT DATE: 20220801
